FAERS Safety Report 10102128 (Version 1)
Quarter: 2014Q2

REPORT INFORMATION
  Report Type: Spontaneous
  Country: US (occurrence: None)
  Receive Date: 20140423
  Receipt Date: 20140423
  Transmission Date: 20141212
  Serious: No
  Sender: FDA-Public Use
  Company Number: None

PATIENT
  Age: 64 Year
  Sex: 0
  Weight: 111.4 kg

DRUGS (1)
  1. LEVOFLOXACIN [Suspect]
     Indication: DIVERTICULITIS
     Route: 048
     Dates: start: 20140411, end: 20140415

REACTIONS (4)
  - Joint range of motion decreased [None]
  - Musculoskeletal pain [None]
  - Sleep disorder due to general medical condition, insomnia type [None]
  - Activities of daily living impaired [None]
